FAERS Safety Report 7542319-1 (Version None)
Quarter: 2011Q2

REPORT INFORMATION
  Report Type: 
  Country: None (occurrence: None)
  Receive Date: 20110613
  Receipt Date: 20110607
  Transmission Date: 20111010
  Serious: Yes (Life-Threatening)
  Sender: FDA-Public Use
  Company Number: FR-ASTRAZENECA-2011SE34957

PATIENT
  Age: 58 Year
  Sex: Male

DRUGS (2)
  1. CELOCURINE [Suspect]
     Indication: ANAESTHESIA
     Dosage: 50 MG/ML,ONCE/SINGLE ADMINISTRATION
     Route: 042
     Dates: start: 20110521, end: 20110521
  2. DIPRIVAN [Suspect]
     Indication: ANAESTHESIA
     Dosage: 200 MG/20 ML, ONCE/SINGLE ADMINISTRATION
     Route: 042
     Dates: start: 20110521, end: 20110521

REACTIONS (1)
  - ANAPHYLACTIC SHOCK [None]
